FAERS Safety Report 5588063-1 (Version None)
Quarter: 2008Q1

REPORT INFORMATION
  Report Type: 
  Country: None (occurrence: None)
  Receive Date: 20080111
  Receipt Date: 20080103
  Transmission Date: 20080703
  Serious: Yes (Death)
  Sender: FDA-Public Use
  Company Number: US-PFIZER INC-2008000784

PATIENT
  Sex: Male
  Weight: 62.6 kg

DRUGS (1)
  1. SUTENT [Suspect]
     Indication: MALIGNANT MELANOMA
     Route: 048
     Dates: start: 20070912, end: 20080101

REACTIONS (1)
  - DEATH [None]
